FAERS Safety Report 9483893 (Version 1)
Quarter: 2013Q3

REPORT INFORMATION
  Report Type: Spontaneous
  Country: CA (occurrence: CA)
  Receive Date: 20130828
  Receipt Date: 20130828
  Transmission Date: 20140515
  Serious: Yes (Other)
  Sender: FDA-Public Use
  Company Number: CA-AMGEN-KDL350255

PATIENT
  Age: 49 Year
  Sex: Female
  Weight: 80.8 kg

DRUGS (3)
  1. ENBREL [Suspect]
     Indication: PSORIASIS
     Dosage: UNK UNK, 2 TIMES/WK
     Route: 065
     Dates: start: 20070201
  2. VENLAFAXINE HCL [Concomitant]
     Dosage: UNK UNK, UNK
     Route: 048
  3. CALCIPOTRIENE [Concomitant]
     Dosage: UNK UNK, UNK

REACTIONS (6)
  - Clostridium difficile infection [Recovering/Resolving]
  - Joint swelling [Unknown]
  - Gait disturbance [Unknown]
  - Arthralgia [Unknown]
  - Lung infection [Recovered/Resolved]
  - Tooth abscess [Recovered/Resolved]
